FAERS Safety Report 7369337-0 (Version None)
Quarter: 2011Q1

REPORT INFORMATION
  Report Type: 
  Country: None (occurrence: None)
  Receive Date: 20110323
  Receipt Date: 20110315
  Transmission Date: 20110831
  Serious: Yes (Life-Threatening)
  Sender: FDA-Public Use
  Company Number: B0707752A

PATIENT
  Sex: Female

DRUGS (1)
  1. AUGMENTIN '125' [Suspect]
     Dosage: 1G PER DAY
     Route: 048
     Dates: start: 20110308, end: 20110308

REACTIONS (4)
  - MALAISE [None]
  - LIP SWELLING [None]
  - PRURITUS [None]
  - TONGUE OEDEMA [None]
